FAERS Safety Report 7022165-8 (Version None)
Quarter: 2010Q3

REPORT INFORMATION
  Report Type: 
  Country: None (occurrence: None)
  Receive Date: 20100930
  Receipt Date: 20100924
  Transmission Date: 20110219
  Serious: Yes (Death, Other)
  Sender: FDA-Public Use
  Company Number: PHHY2010GB17782

PATIENT
  Sex: Male
  Weight: 71 kg

DRUGS (4)
  1. CLOZARIL [Suspect]
     Indication: SCHIZOPHRENIA
     Dosage: UNK
     Dates: start: 20050930
  2. CLOZARIL [Suspect]
     Indication: SCHIZOAFFECTIVE DISORDER
     Dosage: 400MG
     Route: 048
  3. VALPROATE SODIUM [Concomitant]
     Indication: SCHIZOAFFECTIVE DISORDER
     Dosage: UNK
     Route: 048
  4. LITHIUM CARBONATE [Concomitant]
     Dosage: UNK

REACTIONS (12)
  - BLOOD GLUCOSE DECREASED [None]
  - BLOOD POTASSIUM INCREASED [None]
  - BLOOD SODIUM INCREASED [None]
  - BLOOD UREA INCREASED [None]
  - CEREBRAL ATROPHY [None]
  - DEHYDRATION [None]
  - DEPRESSION [None]
  - ERYTHEMA [None]
  - EXCORIATION [None]
  - FEELING COLD [None]
  - GASTRITIS EROSIVE [None]
  - HYPOTHERMIA [None]
